FAERS Safety Report 23637283 (Version 1)
Quarter: 2024Q1

REPORT INFORMATION
  Report Type: Report from Study
  Country: US (occurrence: US)
  Receive Date: 20240315
  Receipt Date: 20240315
  Transmission Date: 20240409
  Serious: Yes (Other)
  Sender: FDA-Public Use
  Company Number: US-ARGENX-2023-ARGX-US000649

PATIENT

DRUGS (1)
  1. VYVGART [Suspect]
     Active Substance: EFGARTIGIMOD ALFA-FCAB
     Indication: Myasthenia gravis
     Dosage: 10 MG
     Route: 042
     Dates: start: 20230220

REACTIONS (14)
  - Diabetes mellitus [Unknown]
  - Headache [Unknown]
  - Nasal congestion [Unknown]
  - Insomnia [Unknown]
  - Tremor [Unknown]
  - Blood glucose increased [Unknown]
  - Peripheral swelling [Recovering/Resolving]
  - Pain in extremity [Recovering/Resolving]
  - Swelling [Recovering/Resolving]
  - Back pain [Recovering/Resolving]
  - Catheter management [Unknown]
  - Device occlusion [Recovered/Resolved]
  - Incorrect dose administered [Unknown]
  - Urinary tract infection [Unknown]

NARRATIVE: CASE EVENT DATE: 20230227
